FAERS Safety Report 10707294 (Version 2)
Quarter: 2015Q1

REPORT INFORMATION
  Report Type: Spontaneous
  Country: US (occurrence: US)
  Receive Date: 20150113
  Receipt Date: 20150209
  Transmission Date: 20150721
  Serious: Yes (Hospitalization)
  Sender: FDA-Public Use
  Company Number: US-EMD SERONO-8004205

PATIENT
  Sex: Female
  Weight: 34 kg

DRUGS (4)
  1. REBIF [Suspect]
     Active Substance: INTERFERON BETA-1A
     Dates: end: 2008
  2. AVONEX [Concomitant]
     Active Substance: INTERFERON BETA-1A
     Indication: MULTIPLE SCLEROSIS
     Route: 030
     Dates: start: 1994
  3. REBIF [Suspect]
     Active Substance: INTERFERON BETA-1A
     Indication: MULTIPLE SCLEROSIS
     Dates: start: 1998, end: 2000
  4. AVONEX [Concomitant]
     Active Substance: INTERFERON BETA-1A
     Route: 030
     Dates: start: 1998

REACTIONS (3)
  - Oesophageal motility disorder [Recovered/Resolved with Sequelae]
  - Influenza like illness [Recovered/Resolved]
  - Choking [Recovered/Resolved with Sequelae]

NARRATIVE: CASE EVENT DATE: 1998
